FAERS Safety Report 6675196-1 (Version None)
Quarter: 2010Q2

REPORT INFORMATION
  Report Type: 
  Country: None (occurrence: None)
  Receive Date: 20100409
  Receipt Date: 20100401
  Transmission Date: 20101027
  Serious: No
  Sender: FDA-Public Use
  Company Number: US-JNJFOC-20100100359

PATIENT
  Sex: Female
  Weight: 99.79 kg

DRUGS (7)
  1. TYLENOL [Suspect]
     Route: 048
  2. TYLENOL [Suspect]
     Indication: ARTHRITIS
     Dosage: 650-1300 MG TWICE A DAY FOR MONTHS
     Route: 048
  3. VICODIN [Suspect]
     Indication: DRUG USE FOR UNKNOWN INDICATION
  4. CIPRO [Suspect]
     Indication: DRUG USE FOR UNKNOWN INDICATION
  5. ANTI-HYPERTENSIVE [Concomitant]
  6. DIABETES MEDICATION [Concomitant]
  7. ^ARTHRITIS MEDICINE^ [Concomitant]

REACTIONS (4)
  - ABDOMINAL PAIN [None]
  - NAUSEA [None]
  - PRODUCT QUALITY ISSUE [None]
  - VOMITING [None]
